FAERS Safety Report 8160791-3 (Version None)
Quarter: 2012Q1

REPORT INFORMATION
  Report Type: 
  Country: None (occurrence: None)
  Receive Date: 20120223
  Receipt Date: 20120217
  Transmission Date: 20120608
  Serious: Yes (Other)
  Sender: FDA-Public Use
  Company Number: PHEH2010US03876

PATIENT
  Sex: Male

DRUGS (47)
  1. ANCEF [Concomitant]
  2. PRILOSEC [Concomitant]
  3. HYTRIN [Concomitant]
  4. SOMA [Concomitant]
  5. KANTREX [Concomitant]
  6. ZOCOR [Concomitant]
  7. ANTIVERT [Concomitant]
  8. INDOCIN [Concomitant]
  9. COUMADIN [Concomitant]
  10. OXYCODONE HCL [Concomitant]
  11. VANCOMYCIN [Concomitant]
  12. INDIGO CARMINE [Concomitant]
  13. METHADONE HCL [Concomitant]
  14. WARFARIN SODIUM [Concomitant]
  15. PERCOCET [Concomitant]
  16. ZYVOX [Concomitant]
  17. TEMAZEPAM [Concomitant]
  18. BACITRACIN [Concomitant]
  19. NEOSPORIN [Concomitant]
  20. HEPARIN [Concomitant]
  21. METHADONE HCL [Concomitant]
  22. VERSED [Concomitant]
  23. HYZAAR [Concomitant]
  24. AREDIA [Suspect]
  25. CLONAZEPAM [Concomitant]
  26. GENTAMICIN [Concomitant]
  27. NEXIUM [Concomitant]
  28. FLUNISOLIDE [Concomitant]
  29. CHEMOTHERAPEUTICS [Concomitant]
  30. MORPHINE [Concomitant]
  31. MARCAINE [Concomitant]
  32. HYDROCORTISONE [Concomitant]
  33. PEPCID [Concomitant]
  34. LEXAPRO [Concomitant]
  35. CARVEDILOL [Concomitant]
  36. CYTOTEC [Concomitant]
  37. ZOFRAN [Concomitant]
  38. SENOKOT [Concomitant]
  39. ZOMETA [Suspect]
  40. PROMETHAZINE [Concomitant]
  41. KETOCONAZOLE [Concomitant]
  42. EFFEXOR [Concomitant]
  43. SENNA [Concomitant]
  44. CYMBALTA [Concomitant]
  45. ALLEGRA [Concomitant]
  46. MISOPROSTOL [Concomitant]
  47. REGELAN [Concomitant]

REACTIONS (32)
  - METASTASES TO BONE [None]
  - NEUROPATHY PERIPHERAL [None]
  - TRICUSPID VALVE INCOMPETENCE [None]
  - CONFUSIONAL STATE [None]
  - ANXIETY [None]
  - VISUAL IMPAIRMENT [None]
  - CEREBROVASCULAR ACCIDENT [None]
  - SLEEP APNOEA SYNDROME [None]
  - VENTRICULAR HYPERTROPHY [None]
  - ARTHRALGIA [None]
  - DYSPNOEA [None]
  - DISABILITY [None]
  - DIVERTICULUM [None]
  - BACK PAIN [None]
  - OSTEONECROSIS OF JAW [None]
  - OSTEOMYELITIS [None]
  - HYPERTENSION [None]
  - PROSTATE CANCER METASTATIC [None]
  - TOBACCO ABUSE [None]
  - SPINAL CORD COMPRESSION [None]
  - PATHOLOGICAL FRACTURE [None]
  - HIP FRACTURE [None]
  - CATARACT [None]
  - ANHEDONIA [None]
  - DEFORMITY [None]
  - NEURITIS [None]
  - MITRAL VALVE INCOMPETENCE [None]
  - HAEMORRHAGIC ANAEMIA [None]
  - PAIN IN EXTREMITY [None]
  - PAIN [None]
  - DENTAL CARIES [None]
  - BONE LOSS [None]
